FAERS Safety Report 5205210-1 (Version None)
Quarter: 2007Q1

REPORT INFORMATION
  Report Type: 
  Country: None (occurrence: None)
  Receive Date: 20070110
  Receipt Date: 20070102
  Transmission Date: 20070707
  Serious: Yes (Other)
  Sender: FDA-Public Use
  Company Number: FR-PFIZER INC-2006153794

PATIENT
  Age: 17 Year
  Sex: Male

DRUGS (1)
  1. GENOTROPIN [Suspect]
     Indication: GROWTH HORMONE DEFICIENCY
     Dosage: TEXT:0.05U/KG

REACTIONS (1)
  - LARGE INTESTINAL HAEMORRHAGE [None]
